FAERS Safety Report 16476957 (Version 1)
Quarter: 2019Q2

REPORT INFORMATION
  Report Type: Spontaneous
  Country: US (occurrence: US)
  Receive Date: 20190626
  Receipt Date: 20190626
  Transmission Date: 20190711
  Serious: Yes (Other)
  Sender: FDA-Public Use
  Company Number: US-AUROBINDO-AUR-APL-2019-034915

PATIENT

DRUGS (4)
  1. MINOCYCLINE [Suspect]
     Active Substance: MINOCYCLINE\MINOCYCLINE HYDROCHLORIDE
     Indication: ACNE
     Dosage: 100 MILLIGRAM, TWO TIMES A DAY
     Route: 065
  2. BENZACLIN [Concomitant]
     Active Substance: BENZOYL PEROXIDE\CLINDAMYCIN PHOSPHATE
     Indication: ACNE
     Dosage: UNK, DAILY
     Route: 065
  3. SULFACETAMIDE SODIUM;SULFUR [Concomitant]
     Active Substance: SULFACETAMIDE SODIUM\SULFUR
     Indication: ACNE
     Dosage: UNK, DAILY
     Route: 065
  4. TRETINOIN. [Concomitant]
     Active Substance: TRETINOIN
     Indication: ACNE
     Dosage: UNK, DAILY
     Route: 065

REACTIONS (5)
  - Cerebral ischaemia [Recovered/Resolved]
  - Diplopia [Recovered/Resolved]
  - Transaminases increased [Unknown]
  - Anti-neutrophil cytoplasmic antibody positive vasculitis [Recovered/Resolved]
  - IIIrd nerve paralysis [Unknown]
